FAERS Safety Report 6070579-5 (Version None)
Quarter: 2009Q1

REPORT INFORMATION
  Report Type: 
  Country: None (occurrence: None)
  Receive Date: 20090209
  Receipt Date: 20090203
  Transmission Date: 20090719
  Serious: Yes (Hospitalization)
  Sender: FDA-Public Use
  Company Number: CH-PFIZER INC-2009164894

PATIENT

DRUGS (3)
  1. TOLTERODINE TARTRATE [Suspect]
     Dosage: UNK
     Route: 048
     Dates: start: 20080801, end: 20081029
  2. DIPIPERON [Suspect]
     Route: 048
     Dates: start: 20080801, end: 20081020
  3. TIATRAL [Concomitant]
     Dosage: UNK
     Route: 048

REACTIONS (1)
  - PARKINSONISM [None]
